FAERS Safety Report 16020450 (Version 1)
Quarter: 2019Q1

REPORT INFORMATION
  Report Type: Spontaneous
  Country: CR (occurrence: CR)
  Receive Date: 20190301
  Receipt Date: 20190301
  Transmission Date: 20190418
  Serious: Yes (Death)
  Sender: FDA-Public Use
  Company Number: CR-ROCHE-2201903

PATIENT
  Age: 92 Year
  Sex: Female

DRUGS (3)
  1. HERCEPTIN [Suspect]
     Active Substance: TRASTUZUMAB
     Indication: BREAST CANCER
     Dosage: DOSE UNKNOWN
     Route: 065
  2. TAXOL [Suspect]
     Active Substance: PACLITAXEL
     Indication: NEOADJUVANT THERAPY
     Dosage: DOSE UNKNOWN
     Route: 065
  3. PERJETA [Suspect]
     Active Substance: PERTUZUMAB
     Indication: BREAST CANCER
     Dosage: DOSE IS UNKNOWN
     Route: 065

REACTIONS (3)
  - Arthralgia [Unknown]
  - Sepsis [Fatal]
  - Diarrhoea [Recovered/Resolved]
